FAERS Safety Report 10902970 (Version 2)
Quarter: 2018Q4

REPORT INFORMATION
  Report Type: Spontaneous
  Country: CA (occurrence: CA)
  Receive Date: 20150310
  Receipt Date: 20181126
  Transmission Date: 20190204
  Serious: Yes (Other)
  Sender: FDA-Public Use
  Company Number: CA-FRI-1000075116

PATIENT
  Age: 57 Year
  Sex: Female
  Weight: 54 kg

DRUGS (12)
  1. ASPIRIN. [Concomitant]
     Active Substance: ASPIRIN
     Dosage: UNK
  2. ESTRACE [Concomitant]
     Active Substance: ESTRADIOL
     Dosage: UNK
  3. RATIO OXYCOCET [Concomitant]
     Dosage: UNK
  4. CORGARD [Concomitant]
     Active Substance: NADOLOL
     Dosage: UNK
  5. VITAMIN D [Concomitant]
     Active Substance: CHOLECALCIFEROL
     Dosage: UNK
  6. TRAZODONE [Concomitant]
     Active Substance: TRAZODONE HYDROCHLORIDE
     Dosage: UNK
  7. STRESSTABS [Concomitant]
     Active Substance: DIETARY SUPPLEMENT
     Dosage: UNK
  8. ASCORBIC ACID. [Concomitant]
     Active Substance: ASCORBIC ACID
     Dosage: UNK
  9. CLONAZEPAM. [Concomitant]
     Active Substance: CLONAZEPAM
     Dosage: UNK
  10. TEMAZEPAM. [Concomitant]
     Active Substance: TEMAZEPAM
     Dosage: UNK
  11. PRISTIQ EXTENDED-RELEASE [Concomitant]
     Active Substance: DESVENLAFAXINE SUCCINATE
     Dosage: UNK
  12. ASENAPINE MALEATE - BP [Suspect]
     Active Substance: ASENAPINE MALEATE
     Indication: DEPRESSION
     Dosage: 5 MG, QD
     Route: 060
     Dates: start: 20140512, end: 20140703

REACTIONS (9)
  - Psychotic disorder [Unknown]
  - Suicidal ideation [Unknown]
  - Depression [Unknown]
  - Product use in unapproved indication [Unknown]
  - Euphoric mood [Unknown]
  - Intentional self-injury [Unknown]
  - Depressed mood [Unknown]
  - Abnormal behaviour [Unknown]
  - Rash [Unknown]

NARRATIVE: CASE EVENT DATE: 20140703
